FAERS Safety Report 22045421 (Version 1)
Quarter: 2023Q1

REPORT INFORMATION
  Report Type: Spontaneous
  Country: US (occurrence: US)
  Receive Date: 20230228
  Receipt Date: 20230228
  Transmission Date: 20230418
  Serious: No
  Sender: FDA-Public Use
  Company Number: US-JNJFOC-20230253150

PATIENT
  Age: 42 Year
  Sex: Female

DRUGS (6)
  1. ULTRAM [Suspect]
     Active Substance: TRAMADOL HYDROCHLORIDE
     Indication: Product used for unknown indication
     Route: 065
  2. NORCO [Concomitant]
     Active Substance: ACETAMINOPHEN\HYDROCODONE BITARTRATE
  3. IBUPROFEN [Concomitant]
     Active Substance: IBUPROFEN
  4. PROVIGIL [Concomitant]
     Active Substance: MODAFINIL
  5. NARCAN [Concomitant]
     Active Substance: NALOXONE HYDROCHLORIDE
  6. ZANAFLEX [Concomitant]
     Active Substance: TIZANIDINE HYDROCHLORIDE

REACTIONS (1)
  - Headache [Unknown]

NARRATIVE: CASE EVENT DATE: 20170405
